FAERS Safety Report 5671440-8 (Version None)
Quarter: 2008Q1

REPORT INFORMATION
  Report Type: 
  Country: None (occurrence: None)
  Receive Date: 20080313
  Receipt Date: 20080219
  Transmission Date: 20080703
  Serious: Yes (Life-Threatening, Hospitalization)
  Sender: FDA-Public Use
  Company Number: 2008AL000913

PATIENT
  Age: 39 Year
  Sex: Male

DRUGS (10)
  1. AMLODIPINE BESYLATE [Suspect]
     Dosage: 280 MG; X1; PO
     Route: 048
  2. METFORMIN HYDROCHLORIDE [Suspect]
     Dosage: 6500 MG; X1
  3. DOXAZOSIN [Concomitant]
  4. CALCIUM [Concomitant]
  5. POTASSIUM CHLORIDE [Concomitant]
  6. GLUCOSE [Concomitant]
  7. EPINEHRINE [Concomitant]
  8. NOREPINEPHRINE [Concomitant]
  9. INSULIN 2 [Concomitant]
  10. ANGETTES [Concomitant]

REACTIONS (3)
  - CARDIOTOXICITY [None]
  - HYPOTENSION [None]
  - OVERDOSE [None]
